FAERS Safety Report 9827564 (Version 1)
Quarter: 2014Q1

REPORT INFORMATION
  Report Type: Spontaneous
  Country: US (occurrence: None)
  Receive Date: 20140116
  Receipt Date: 20140116
  Transmission Date: 20141002
  Serious: Yes (Other)
  Sender: FDA-Public Use
  Company Number: None

PATIENT
  Age: 70 Year
  Sex: Female
  Weight: 63.96 kg

DRUGS (1)
  1. TEMAZEPAM [Suspect]
     Dosage: 30 MG  ONCE DAILY  TAKEN BY MOUTH?MONTHLY
     Route: 048

REACTIONS (1)
  - Drug ineffective [None]
